FAERS Safety Report 4549992-0 (Version None)
Quarter: 2005Q1

REPORT INFORMATION
  Report Type: 
  Country: None (occurrence: None)
  Receive Date: 20050112
  Receipt Date: 20050105
  Transmission Date: 20050727
  Serious: Yes (Hospitalization)
  Sender: FDA-Public Use
  Company Number: FR-BRISTOL-MYERS SQUIBB COMPANY-12815734

PATIENT
  Age: 81 Year
  Sex: Female

DRUGS (4)
  1. VASTEN [Suspect]
     Route: 048
     Dates: start: 20041206, end: 20041210
  2. MOPRAL [Suspect]
     Route: 048
     Dates: start: 20041206, end: 20041210
  3. ZAMUDOL [Concomitant]
     Dates: start: 20041207, end: 20041210
  4. FRAXIPARINE [Concomitant]
     Route: 058
     Dates: start: 20041207, end: 20041210

REACTIONS (3)
  - CANDIDIASIS [None]
  - EXANTHEM [None]
  - RASH PUSTULAR [None]
